FAERS Safety Report 9762753 (Version 2)
Quarter: 2014Q1

REPORT INFORMATION
  Report Type: Report from Study
  Country: FR (occurrence: FR)
  Receive Date: 20131216
  Receipt Date: 20140113
  Transmission Date: 20141002
  Serious: Yes (Other)
  Sender: FDA-Public Use
  Company Number: PHHY2013FR145864

PATIENT
  Age: 65 Year
  Sex: Female
  Weight: 53 kg

DRUGS (4)
  1. ACLASTA/ZOLEDRONATE [Suspect]
     Indication: OSTEOPOROSIS
     Dosage: 5 MG, ANNUALLY
     Route: 042
     Dates: start: 20120202
  2. ACLASTA/ZOLEDRONATE [Suspect]
     Dosage: 5 MG, ANNUALLY
     Route: 042
     Dates: start: 20130201
  3. UVEDOSE [Concomitant]
     Dosage: UNK
     Dates: start: 2011, end: 201205
  4. PROMESTRIENE [Concomitant]
     Dosage: UNK
     Dates: start: 2012, end: 201208

REACTIONS (4)
  - Lumbar vertebral fracture [Recovered/Resolved]
  - Bone pain [Recovered/Resolved]
  - Infectious mononucleosis [Recovered/Resolved]
  - Fall [Recovered/Resolved]
